FAERS Safety Report 9219463 (Version 1)
Quarter: 2013Q2

REPORT INFORMATION
  Report Type: Spontaneous
  Country: US (occurrence: None)
  Receive Date: 20130408
  Receipt Date: 20130408
  Transmission Date: 20140414
  Serious: Yes (Other)
  Sender: FDA-Public Use
  Company Number: None

PATIENT
  Age: 52 Year
  Sex: Male

DRUGS (14)
  1. AFINITOR [Suspect]
     Route: 048
     Dates: start: 20120822, end: 20130201
  2. HYDROCODONE /ACETAMINOPRINE [Concomitant]
  3. LEVOTHYROXINE [Concomitant]
  4. AMLODIPINE BESYLATE [Concomitant]
  5. MULTIVITAMIN [Concomitant]
  6. TRAZODONE [Concomitant]
  7. MULTIVITAMIN [Concomitant]
  8. OMEPRAZOLE [Concomitant]
  9. FLOMAX [Concomitant]
  10. AMBIEN [Concomitant]
  11. SENNA [Concomitant]
  12. LORAZEPAM [Concomitant]
  13. ASPIRIN [Concomitant]
  14. VIT CAVITE [Concomitant]

REACTIONS (1)
  - Drug ineffective [None]
